FAERS Safety Report 12305776 (Version 1)
Quarter: 2016Q2

REPORT INFORMATION
  Report Type: Spontaneous
  Country: TW (occurrence: TW)
  Receive Date: 20160426
  Receipt Date: 20160426
  Transmission Date: 20160815
  Serious: Yes (Hospitalization)
  Sender: FDA-Public Use
  Company Number: TW-MYLANLABS-2016M1017157

PATIENT

DRUGS (3)
  1. PALIPERIDONE. [Suspect]
     Active Substance: PALIPERIDONE
     Indication: ACUTE PSYCHOSIS
     Dosage: 9MG/DAY INCREASED TO 12MG/DAY
     Route: 048
  2. ESTAZOLAM. [Concomitant]
     Active Substance: ESTAZOLAM
     Dosage: AT NIGHT
     Route: 065
  3. LITHIUM. [Suspect]
     Active Substance: LITHIUM
     Indication: ACUTE PSYCHOSIS
     Dosage: 900MG/DAY
     Route: 065

REACTIONS (1)
  - Serotonin syndrome [Recovered/Resolved]
